FAERS Safety Report 4410767-4 (Version None)
Quarter: 2004Q2

REPORT INFORMATION
  Report Type: 
  Country: None (occurrence: None)
  Receive Date: 20040630
  Receipt Date: 20040429
  Transmission Date: 20050107
  Serious: No
  Sender: FDA-Public Use
  Company Number: 04P-163-0259065-00

PATIENT
  Age: 66 Year
  Sex: Female
  Weight: 51.2565 kg

DRUGS (6)
  1. HUMIRA [Suspect]
     Indication: RHEUMATOID ARTHRITIS
     Dosage: 40 MG, 1 IN 2 WK, SUBCUTANEOUS
     Route: 058
     Dates: start: 20040101
  2. DIOVAN [Concomitant]
  3. AMLODIPINE BESYLATE [Concomitant]
  4. METOPROLOL SUCCINATE [Concomitant]
  5. METHOTREXATE [Concomitant]
  6. FLORA WITH HERBS [Concomitant]

REACTIONS (5)
  - DRUG EFFECT DECREASED [None]
  - HYPERTENSION [None]
  - INJECTION SITE ERYTHEMA [None]
  - INJECTION SITE MASS [None]
  - INJECTION SITE PAIN [None]
